FAERS Safety Report 4641619-2 (Version None)
Quarter: 2005Q2

REPORT INFORMATION
  Report Type: 
  Country: None (occurrence: None)
  Receive Date: 20050421
  Receipt Date: 20050316
  Transmission Date: 20051028
  Serious: Yes (Hospitalization, Other)
  Sender: FDA-Public Use
  Company Number: BE-ABBOTT-05P-013-0294542-00

PATIENT
  Sex: Female

DRUGS (16)
  1. ZEMPLAR [Suspect]
     Indication: HYPERPARATHYROIDISM SECONDARY
     Dosage: NOT REPORTED
     Route: 050
     Dates: start: 20050228
  2. TRAMADOL HCL [Concomitant]
     Indication: ARTHRALGIA
     Dates: start: 20041123
  3. PARACETAMOL [Concomitant]
     Indication: ARTHRALGIA
     Dates: start: 19951120
  4. RANITIDINE [Concomitant]
     Indication: PROPHYLAXIS
     Dates: start: 20020726
  5. DUOVENT [Concomitant]
     Indication: NASOPHARYNGITIS
     Dosage: 3 INHALATIONS/DAY
     Route: 055
     Dates: start: 20040414
  6. LORMETAZEPAM [Concomitant]
     Indication: SLEEP DISORDER
     Dates: start: 19960306
  7. GABAPEATINUM [Concomitant]
     Indication: POLYNEUROPATHY
     Dates: start: 20040125
  8. SEVELAMER [Concomitant]
     Indication: RENAL OSTEODYSTROPHY
     Dates: start: 20031209
  9. TRAZODONE HYDROCHLORIDE [Concomitant]
     Indication: DEPRESSION
     Dates: start: 20031212
  10. DOMPERIDONE [Concomitant]
     Indication: IMPAIRED GASTRIC EMPTYING
     Dates: start: 20041213
  11. EPOGEN [Concomitant]
     Indication: NEPHROGENIC ANAEMIA
     Dosage: 37 SE/KG/WEEK
     Dates: start: 19900101
  12. METYLDIGOXINE [Concomitant]
     Indication: CARDIAC FAILURE
     Dates: start: 20041210, end: 20050301
  13. NEUROBION FOR INJECTION [Concomitant]
     Indication: NEPHROGENIC ANAEMIA
     Dates: start: 19990714
  14. ASCORBINE ACID [Concomitant]
     Indication: NEPHROGENIC ANAEMIA
     Dates: start: 20020801
  15. LEVOFLOXACIN [Concomitant]
     Indication: ENTERITIS
     Dates: start: 20050314, end: 20050316
  16. ITRACOMAZOLE [Concomitant]
     Indication: ENTERITIS
     Dates: start: 20050316, end: 20050316

REACTIONS (4)
  - ENTERITIS INFECTIOUS [None]
  - GASTROENTERITIS VIRAL [None]
  - GASTROINTESTINAL FUNGAL INFECTION [None]
  - RESPIRATORY TRACT INFECTION [None]
